FAERS Safety Report 14911678 (Version 1)
Quarter: 2018Q2

REPORT INFORMATION
  Report Type: Spontaneous
  Country: IT (occurrence: IT)
  Receive Date: 20180518
  Receipt Date: 20180518
  Transmission Date: 20180711
  Serious: Yes (Other)
  Sender: FDA-Public Use
  Company Number: IT-SUN PHARMACEUTICAL INDUSTRIES LTD-2018RR-173093

PATIENT
  Age: 8 Year
  Sex: Male
  Weight: 32 kg

DRUGS (1)
  1. ALPRAZOLAM. [Suspect]
     Active Substance: ALPRAZOLAM
     Indication: MEDICATION ERROR
     Dosage: 16 GTT, IN TOTAL
     Route: 048
     Dates: start: 20180403, end: 20180403

REACTIONS (2)
  - Poisoning [Recovering/Resolving]
  - Medication error [Recovering/Resolving]

NARRATIVE: CASE EVENT DATE: 20180403
